FAERS Safety Report 4505360-9 (Version None)
Quarter: 2004Q4

REPORT INFORMATION
  Report Type: 
  Country: None (occurrence: None)
  Receive Date: 20041116
  Receipt Date: 20041103
  Transmission Date: 20050328
  Serious: Yes (Other)
  Sender: FDA-Public Use
  Company Number: 2004091479

PATIENT
  Sex: Female

DRUGS (1)
  1. DEPO-PROVERA [Suspect]
     Indication: CONTRACEPTION
     Dosage: 150 MG (150 MG, 1ST INJECTION,TRIMESTRAL)
     Dates: start: 20030101, end: 20030101

REACTIONS (4)
  - ALOPECIA [None]
  - ASTHENIA [None]
  - RENAL PAIN [None]
  - URINARY TRACT INFECTION [None]
